FAERS Safety Report 7687606-1 (Version None)
Quarter: 2011Q3

REPORT INFORMATION
  Report Type: 
  Country: None (occurrence: None)
  Receive Date: 20110817
  Receipt Date: 20110808
  Transmission Date: 20111222
  Serious: Yes (Other)
  Sender: FDA-Public Use
  Company Number: US-CEPHALON-US023232

PATIENT
  Sex: Male

DRUGS (1)
  1. PROVIGIL [Suspect]
     Route: 048

REACTIONS (3)
  - DYSPNOEA [None]
  - CONVULSION [None]
  - SYNCOPE [None]
